FAERS Safety Report 7296371-1 (Version None)
Quarter: 2011Q1

REPORT INFORMATION
  Report Type: 
  Country: None (occurrence: None)
  Receive Date: 20110211
  Receipt Date: 20110211
  Transmission Date: 20110831
  Serious: No
  Sender: FDA-Public Use
  Company Number: None

PATIENT
  Age: 62 Year
  Sex: Female
  Weight: 69.4003 kg

DRUGS (2)
  1. BUSPIRONE HCL [Suspect]
     Indication: ANXIETY
     Dosage: 10 MG ONCE PER DAY PO
     Route: 048
     Dates: start: 20101201, end: 20110228
  2. BUSPAR [Suspect]

REACTIONS (2)
  - DRUG INEFFECTIVE [None]
  - PRODUCT SUBSTITUTION ISSUE [None]
